FAERS Safety Report 24397079 (Version 1)
Quarter: 2024Q4

REPORT INFORMATION
  Report Type: Report from Study
  Country: CA (occurrence: CA)
  Receive Date: 20241004
  Receipt Date: 20241004
  Transmission Date: 20250115
  Serious: Yes (Life-Threatening, Hospitalization, Disabling)
  Sender: PFIZER
  Company Number: CA-PFIZER INC-PV202400104777

PATIENT
  Age: 34 Year
  Sex: Female
  Weight: 56 kg

DRUGS (3)
  1. VOXELOTOR [Suspect]
     Active Substance: VOXELOTOR
     Indication: Sickle cell disease
     Dosage: 1500 MG, DAILY
     Route: 048
     Dates: start: 20240515
  2. ERYTHROPOIETIN [Concomitant]
     Active Substance: ERYTHROPOIETIN
     Indication: Anaemia
     Dosage: 40000 IU, 2-3X WEEKLY (SYRINGE)
     Route: 058
     Dates: start: 20240621
  3. DARBEPOETIN ALFA [Concomitant]
     Active Substance: DARBEPOETIN ALFA
     Indication: Anaemia
     Dosage: 100-200 UG, 1-2X WEEKLY (SYRINGE)
     Route: 058
     Dates: start: 20201119, end: 20240621

REACTIONS (4)
  - Acute chest syndrome [Recovered/Resolved]
  - Ischaemic stroke [Recovering/Resolving]
  - Chronic kidney disease [Unknown]
  - Cardiac failure congestive [Unknown]

NARRATIVE: CASE EVENT DATE: 20240722
